FAERS Safety Report 5153309-0 (Version None)
Quarter: 2006Q4

REPORT INFORMATION
  Report Type: 
  Country: None (occurrence: None)
  Receive Date: 20061116
  Receipt Date: 20061116
  Transmission Date: 20070319
  Serious: Yes (Hospitalization)
  Sender: FDA-Public Use
  Company Number: None

PATIENT
  Sex: Male
  Weight: 89.9 kg

DRUGS (15)
  1. OMEPRAZOLE [Suspect]
     Indication: PROPHYLAXIS
     Dosage: 20MG  DAILY  PO
     Route: 048
     Dates: start: 20060619, end: 20060727
  2. OMEPRAZOLE [Suspect]
     Indication: STOMACH DISCOMFORT
     Dosage: 20MG  DAILY  PO
     Route: 048
     Dates: start: 20060619, end: 20060727
  3. CEFEPIME [Concomitant]
  4. URSODIOL [Concomitant]
  5. VANCOMYCIN [Concomitant]
  6. PRIMAXIN [Concomitant]
  7. CIPRO [Concomitant]
  8. IMIPENEM [Concomitant]
  9. DOXORUBICIN HCL [Concomitant]
  10. CYCLOPHOSPHAMIDE [Concomitant]
  11. ALLOPURINOL [Concomitant]
  12. VALSARTAN [Concomitant]
  13. HYDROCHLOROTHIAZIDE [Concomitant]
  14. RITUXIMAB [Concomitant]
  15. VINCRISTINE [Concomitant]

REACTIONS (5)
  - BLOOD CULTURE POSITIVE [None]
  - FEBRILE NEUTROPENIA [None]
  - PSEUDOMONAS INFECTION [None]
  - THERAPY NON-RESPONDER [None]
  - WHITE BLOOD CELL COUNT DECREASED [None]
